FAERS Safety Report 20081963 (Version 1)
Quarter: 2021Q4

REPORT INFORMATION
  Report Type: Spontaneous
  Country: DE (occurrence: DE)
  Receive Date: 20211117
  Receipt Date: 20211117
  Transmission Date: 20220303
  Serious: Yes (Hospitalization)
  Sender: FDA-Public Use
  Company Number: DE-ADRED-07157-02

PATIENT
  Age: 83 Year
  Sex: Male
  Weight: 100 kg

DRUGS (5)
  1. APIXABAN [Suspect]
     Active Substance: APIXABAN
     Indication: Product used for unknown indication
     Dosage: 5 MILLIGRAM, (1-0-1-0)
  2. SIMVASTATIN [Concomitant]
     Active Substance: SIMVASTATIN
     Dosage: 10 MILLIGRAM, (0-0-1-0)
  3. RAMIPRIL [Concomitant]
     Active Substance: RAMIPRIL
     Dosage: 5 MILLIGRAM, (1-0-0-0)
  4. BISOPROLOL [Concomitant]
     Active Substance: BISOPROLOL
     Dosage: 2.5 MILLIGRAM, (1-0-0-0)
  5. AMLODIPIN                          /00972401/ [Concomitant]
     Dosage: 5 MILLIGRAM, (1-0-0-0)

REACTIONS (8)
  - Haematuria [Recovering/Resolving]
  - Atrial fibrillation [Recovering/Resolving]
  - Systemic infection [Recovering/Resolving]
  - Condition aggravated [Recovering/Resolving]
  - Urogenital haemorrhage [Recovering/Resolving]
  - Pyrexia [Recovering/Resolving]
  - General physical health deterioration [Recovering/Resolving]
  - Anaemia [Recovering/Resolving]
